FAERS Safety Report 5298349-6 (Version None)
Quarter: 2007Q2

REPORT INFORMATION
  Report Type: 
  Country: None (occurrence: None)
  Receive Date: 20070416
  Receipt Date: 20070404
  Transmission Date: 20071010
  Serious: Yes (Other)
  Sender: FDA-Public Use
  Company Number: CA-PFIZER INC-2007022350

PATIENT
  Sex: Female
  Weight: 81.6 kg

DRUGS (4)
  1. GABAPENTIN [Suspect]
     Indication: ANXIETY
     Route: 048
     Dates: start: 20040804, end: 20070220
  2. SERTRALINE [Concomitant]
     Indication: ANXIETY
     Route: 048
  3. IMOVANE [Concomitant]
     Indication: INSOMNIA
     Route: 048
  4. CLONAZEPAM [Concomitant]
     Indication: INSOMNIA
     Route: 048

REACTIONS (3)
  - HYPOKINESIA [None]
  - SPEECH DISORDER [None]
  - TREMOR [None]
